FAERS Safety Report 5483556-X (Version None)
Quarter: 2007Q4

REPORT INFORMATION
  Report Type: 
  Country: None (occurrence: None)
  Receive Date: 20071012
  Receipt Date: 20071002
  Transmission Date: 20080405
  Serious: Yes (Other)
  Sender: FDA-Public Use
  Company Number: CA-KINGPHARMUSA00001-K200701279

PATIENT

DRUGS (1)
  1. EPIPEN [Suspect]
     Dosage: UNK, SINGLE
     Route: 023
     Dates: start: 20071002, end: 20071002

REACTIONS (4)
  - ACCIDENTAL EXPOSURE [None]
  - ACCIDENTAL NEEDLE STICK [None]
  - INJECTION SITE DISCOLOURATION [None]
  - INJECTION SITE PALLOR [None]
